FAERS Safety Report 7214684-6 (Version None)
Quarter: 2011Q1

REPORT INFORMATION
  Report Type: 
  Country: None (occurrence: None)
  Receive Date: 20110107
  Receipt Date: 20091201
  Transmission Date: 20110831
  Serious: No
  Sender: FDA-Public Use
  Company Number: A0720966A

PATIENT
  Age: 69 Year
  Sex: Male

DRUGS (13)
  1. COUMADIN [Suspect]
  2. ASPIRIN [Concomitant]
  3. LIPITOR [Concomitant]
  4. TRICOR [Concomitant]
  5. PREVACID [Concomitant]
  6. SOTALOL [Suspect]
  7. ZOCOR [Suspect]
  8. PROPECIA [Concomitant]
  9. ZETIA [Concomitant]
  10. LOVAZA [Suspect]
     Indication: ROUTINE HEALTH MAINTENANCE
     Dosage: 2G PER DAY
     Route: 048
     Dates: start: 20071101
  11. PLAVIX [Concomitant]
  12. RYTHMOL [Suspect]
     Indication: ATRIAL FIBRILLATION
     Dosage: 450MG PER DAY
     Dates: start: 20071101, end: 20080119
  13. TOPROL-XL [Suspect]

REACTIONS (2)
  - OFF LABEL USE [None]
  - ALOPECIA [None]
